FAERS Safety Report 10285819 (Version 1)
Quarter: 2014Q3

REPORT INFORMATION
  Report Type: Spontaneous
  Country: US (occurrence: None)
  Receive Date: 20140703
  Receipt Date: 20140703
  Transmission Date: 20150326
  Serious: Yes (Other)
  Sender: FDA-Public Use
  Company Number: UNT-2014-002937

PATIENT
  Age: 76 Year
  Sex: Female
  Weight: 46.2 kg

DRUGS (3)
  1. TRACLEER [Concomitant]
     Active Substance: BOSENTAN\BOSENTAN MONOHYDRATE
  2. REMODULIN [Suspect]
     Active Substance: TREPROSTINIL
     Indication: COR PULMONALE CHRONIC
     Dosage: CONTINUING
     Route: 058
     Dates: start: 20110517
  3. WARFARIN (WARFARIN) [Concomitant]
     Active Substance: WARFARIN

REACTIONS (8)
  - Fibromyalgia [None]
  - Burning sensation [None]
  - Oxygen saturation decreased [None]
  - Infusion site haematoma [None]
  - Oxygen saturation increased [None]
  - Shunt blood flow excessive [None]
  - Headache [None]
  - Drug dose omission [None]

NARRATIVE: CASE EVENT DATE: 20140619
